FAERS Safety Report 7622396-X (Version None)
Quarter: 2011Q3

REPORT INFORMATION
  Report Type: 
  Country: None (occurrence: None)
  Receive Date: 20110711
  Receipt Date: 20110630
  Transmission Date: 20111222
  Serious: Yes (Hospitalization)
  Sender: FDA-Public Use
  Company Number: 2009JP000029

PATIENT
  Age: 38 Year
  Sex: Male

DRUGS (14)
  1. ALLOPURINOL [Concomitant]
  2. DIOVAN [Concomitant]
  3. BONALON (ALENDRONATE SODIUM) [Concomitant]
  4. FOSAMAX [Concomitant]
  5. LASIX (FUROSEMIDE SODIUIM) [Concomitant]
  6. TACROLIMUS [Suspect]
     Indication: LUPUS NEPHRITIS
     Dosage: 3 MG, ORAL
     Route: 048
     Dates: start: 20080109
  7. MEVALOTIN (PRAVASTATN SODIUM) [Concomitant]
  8. BUFFERIN (MECLOZINE HYDROCHLORIDE) [Concomitant]
  9. PREDNISOLONE [Suspect]
     Indication: LUPUS NEPHRITIS
     Dosage: 20,18,17,16,15  MG, ORAL
     Route: 048
     Dates: start: 20081126, end: 20090106
  10. PREDNISOLONE [Suspect]
     Indication: LUPUS NEPHRITIS
     Dosage: 20,18,17,16,15  MG, ORAL
     Route: 048
     Dates: start: 20090107
  11. PREDNISOLONE [Suspect]
     Indication: LUPUS NEPHRITIS
     Dosage: 20,18,17,16,15  MG, ORAL
     Route: 048
     Dates: start: 20081105, end: 20081125
  12. PREDNISOLONE [Suspect]
     Indication: LUPUS NEPHRITIS
     Dosage: 20,18,17,16,15  MG, ORAL
     Route: 048
     Dates: start: 20080109, end: 20080610
  13. PREDNISOLONE [Suspect]
     Indication: LUPUS NEPHRITIS
     Dosage: 20,18,17,16,15  MG, ORAL
     Route: 048
     Dates: start: 20080611, end: 20081104
  14. ENALAPRIL MALEATE [Concomitant]

REACTIONS (7)
  - ALANINE AMINOTRANSFERASE INCREASED [None]
  - NORMOCHROMIC NORMOCYTIC ANAEMIA [None]
  - CHOLELITHIASIS [None]
  - HEPATIC FUNCTION ABNORMAL [None]
  - BLOOD UREA INCREASED [None]
  - CONDITION AGGRAVATED [None]
  - HYPERURICAEMIA [None]
